FAERS Safety Report 17964407 (Version 1)
Quarter: 2020Q2

REPORT INFORMATION
  Report Type: Spontaneous
  Country: CN (occurrence: CN)
  Receive Date: 20200630
  Receipt Date: 20200630
  Transmission Date: 20200714
  Serious: Yes (Other)
  Sender: FDA-Public Use
  Company Number: CN-PFIZER INC-2020250590

PATIENT
  Age: 1 Day
  Sex: Male
  Weight: 1 kg

DRUGS (1)
  1. AZITHROMYCIN ANHYDROUS. [Suspect]
     Active Substance: AZITHROMYCIN ANHYDROUS
     Indication: NEONATAL RESPIRATORY DISTRESS SYNDROME
     Dosage: 12 MG, 1X/DAY
     Route: 041
     Dates: start: 20200613, end: 20200614

REACTIONS (4)
  - Heart rate increased [Recovered/Resolved]
  - Product use issue [Unknown]
  - Arrhythmia neonatal [Recovered/Resolved]
  - Off label use [Unknown]

NARRATIVE: CASE EVENT DATE: 20200613
